FAERS Safety Report 16654189 (Version 2)
Quarter: 2019Q3

REPORT INFORMATION
  Report Type: Spontaneous
  Country: US (occurrence: US)
  Receive Date: 20190731
  Receipt Date: 20190809
  Transmission Date: 20191004
  Serious: Yes (Death)
  Sender: FDA-Public Use
  Company Number: US-SA-2019SA200287

PATIENT
  Age: 60 Year
  Sex: Male

DRUGS (6)
  1. COUMADIN [Concomitant]
     Active Substance: WARFARIN SODIUM
     Dosage: UNK
  2. ELOXATIN [Concomitant]
     Active Substance: OXALIPLATIN
  3. 5-FU [FLUOROURACIL] [Concomitant]
     Active Substance: FLUOROURACIL
     Dosage: UNK
  4. LOVENOX [Suspect]
     Active Substance: ENOXAPARIN SODIUM
     Indication: ANTICOAGULANT THERAPY
  5. LOVENOX [Suspect]
     Active Substance: ENOXAPARIN SODIUM
     Indication: CARDIAC DISORDER
     Dosage: UNK UNK, UNK
     Route: 065
  6. AVASTIN [Concomitant]
     Active Substance: BEVACIZUMAB
     Dosage: UNK

REACTIONS (10)
  - Weight decreased [Unknown]
  - International normalised ratio increased [Unknown]
  - Eye haemorrhage [Fatal]
  - Ear haemorrhage [Fatal]
  - Insomnia [Unknown]
  - Dehydration [Unknown]
  - Epistaxis [Fatal]
  - Mouth haemorrhage [Fatal]
  - Dysgraphia [Unknown]
  - Dyspnoea [Unknown]
